FAERS Safety Report 9946561 (Version 1)
Quarter: 2014Q1

REPORT INFORMATION
  Report Type: Spontaneous
  Country: US (occurrence: US)
  Receive Date: 20140303
  Receipt Date: 20140303
  Transmission Date: 20141002
  Serious: No
  Sender: FDA-Public Use
  Company Number: US-AMGEN-USASP2014005122

PATIENT
  Age: 78 Year
  Sex: Female
  Weight: 58.96 kg

DRUGS (9)
  1. ENBREL [Suspect]
     Indication: RHEUMATOID ARTHRITIS
     Dosage: 50 MG, QWK
     Route: 058
     Dates: start: 2011
  2. PREDNISONE [Concomitant]
     Dosage: UNK, PRN
  3. DIOVAN [Concomitant]
     Dosage: UNK
  4. SYNTHROID [Concomitant]
     Dosage: UNK
  5. FOLIC ACID [Concomitant]
     Dosage: UNK
  6. CALCIUM [Concomitant]
     Dosage: UNK
  7. OSTEO BI-FLEX                      /01431201/ [Concomitant]
     Dosage: UNK
  8. VITAMIN B-12 [Concomitant]
     Dosage: UNK
  9. FISH OIL [Concomitant]
     Dosage: UNK

REACTIONS (5)
  - Cough [Recovered/Resolved]
  - Throat irritation [Unknown]
  - Dry throat [Unknown]
  - Injection site bruising [Recovered/Resolved]
  - Nasopharyngitis [Recovered/Resolved]
